FAERS Safety Report 16203231 (Version 1)
Quarter: 2019Q2

REPORT INFORMATION
  Report Type: Spontaneous
  Country: DK (occurrence: DK)
  Receive Date: 20190416
  Receipt Date: 20190416
  Transmission Date: 20190711
  Serious: Yes (Disabling)
  Sender: FDA-Public Use
  Company Number: DK-ABBVIE-19K-044-2746776-00

PATIENT
  Age: 74 Year
  Sex: Male

DRUGS (4)
  1. HUMIRA [Suspect]
     Active Substance: ADALIMUMAB
     Indication: PSORIATIC ARTHROPATHY
     Dosage: 80 MG SUBCUTANEOUSLY FOLLOWED BY 40 MG EVERY 2 WEEKS
     Route: 058
     Dates: start: 20101101
  2. ENBREL [Suspect]
     Active Substance: ETANERCEPT
     Indication: PSORIATIC ARTHROPATHY
     Dosage: 50 MG X 2 WEEKLY, STRENGTH: 50 MG
     Route: 058
     Dates: start: 20130116
  3. ENBREL [Suspect]
     Active Substance: ETANERCEPT
     Route: 058
     Dates: end: 20140103
  4. HUMIRA [Suspect]
     Active Substance: ADALIMUMAB
     Dosage: 80 MG SUBCUTANEOUSLY FOLLOWED BY 40 MG EVERY 2 WEEKS
     Route: 058
     Dates: end: 20110822

REACTIONS (1)
  - Pleural fibrosis [Not Recovered/Not Resolved]

NARRATIVE: CASE EVENT DATE: 20190329
